FAERS Safety Report 17021759 (Version 3)
Quarter: 2021Q1

REPORT INFORMATION
  Report Type: Spontaneous
  Country: GB (occurrence: GB)
  Receive Date: 20191112
  Receipt Date: 20210218
  Transmission Date: 20210419
  Serious: Yes (Death)
  Sender: FDA-Public Use
  Company Number: GB-MYLANLABS-2019M1107025

PATIENT
  Age: 18 Year
  Sex: Female

DRUGS (1)
  1. EMERADE [Suspect]
     Active Substance: EPINEPHRINE BITARTRATE
     Indication: HYPERSENSITIVITY
     Dosage: UNK
     Dates: start: 2018, end: 2018

REACTIONS (1)
  - Drug ineffective [Fatal]

NARRATIVE: CASE EVENT DATE: 2018
